FAERS Safety Report 14789382 (Version 1)
Quarter: 2018Q2

REPORT INFORMATION
  Report Type: Spontaneous
  Country: US (occurrence: US)
  Receive Date: 20180423
  Receipt Date: 20180423
  Transmission Date: 20180711
  Serious: Yes (Other)
  Sender: FDA-Public Use
  Company Number: US-SUN PHARMACEUTICAL INDUSTRIES LTD-2018US-170707

PATIENT
  Age: 28 Year
  Sex: Female

DRUGS (2)
  1. IBUPROFEN. [Suspect]
     Active Substance: IBUPROFEN
     Indication: PRODUCT USED FOR UNKNOWN INDICATION
     Dosage: 500 TABS
     Route: 065
  2. SLEEP PM [Suspect]
     Active Substance: UNSPECIFIED INGREDIENT
     Indication: PRODUCT USED FOR UNKNOWN INDICATION
     Dosage: 120 TABS
     Route: 065

REACTIONS (9)
  - Haemodialysis [None]
  - Drug abuse [Unknown]
  - Electrocardiogram QRS complex abnormal [Unknown]
  - Lactic acidosis [Unknown]
  - Depressed level of consciousness [Unknown]
  - Electrocardiogram QT interval abnormal [Unknown]
  - Obstructive airways disorder [Unknown]
  - Sinus tachycardia [Unknown]
  - Suicide attempt [Unknown]
